FAERS Safety Report 19944081 (Version 4)
Quarter: 2022Q1

REPORT INFORMATION
  Report Type: Report from Study
  Country: CA (occurrence: CA)
  Receive Date: 20211011
  Receipt Date: 20220301
  Transmission Date: 20220423
  Serious: Yes (Other)
  Sender: FDA-Public Use
  Company Number: CA-TAKEDA-2021TUS061137

PATIENT
  Age: 85 Year
  Sex: Female

DRUGS (20)
  1. TEDUGLUTIDE [Suspect]
     Active Substance: TEDUGLUTIDE
     Indication: Short-bowel syndrome
     Dosage: 2.8 MILLIGRAM, QD
     Route: 058
     Dates: start: 20171018, end: 20201001
  2. TEDUGLUTIDE [Suspect]
     Active Substance: TEDUGLUTIDE
     Indication: Short-bowel syndrome
     Dosage: 2.8 MILLIGRAM, QD
     Route: 058
     Dates: start: 20171018, end: 20201001
  3. TEDUGLUTIDE [Suspect]
     Active Substance: TEDUGLUTIDE
     Indication: Short-bowel syndrome
     Dosage: 2.8 MILLIGRAM, QD
     Route: 058
     Dates: start: 20171018, end: 20201001
  4. TEDUGLUTIDE [Suspect]
     Active Substance: TEDUGLUTIDE
     Indication: Short-bowel syndrome
     Dosage: 2.8 MILLIGRAM, QD
     Route: 058
     Dates: start: 20171018, end: 20201001
  5. TEDUGLUTIDE [Suspect]
     Active Substance: TEDUGLUTIDE
     Dosage: 2.75 MILLIGRAM, QD
     Route: 058
     Dates: start: 20171018, end: 20201001
  6. TEDUGLUTIDE [Suspect]
     Active Substance: TEDUGLUTIDE
     Dosage: 2.75 MILLIGRAM, QD
     Route: 058
     Dates: start: 20171018, end: 20201001
  7. TEDUGLUTIDE [Suspect]
     Active Substance: TEDUGLUTIDE
     Dosage: 2.75 MILLIGRAM, QD
     Route: 058
     Dates: start: 20171018, end: 20201001
  8. TEDUGLUTIDE [Suspect]
     Active Substance: TEDUGLUTIDE
     Dosage: 2.75 MILLIGRAM, QD
     Route: 058
     Dates: start: 20171018, end: 20201001
  9. TEDUGLUTIDE [Suspect]
     Active Substance: TEDUGLUTIDE
     Dosage: 1.33 MILLIGRAM, QD
     Route: 058
     Dates: start: 20171018
  10. TEDUGLUTIDE [Suspect]
     Active Substance: TEDUGLUTIDE
     Dosage: 1.33 MILLIGRAM, QD
     Route: 058
     Dates: start: 20171018
  11. TEDUGLUTIDE [Suspect]
     Active Substance: TEDUGLUTIDE
     Dosage: 1.33 MILLIGRAM, QD
     Route: 058
     Dates: start: 20171018
  12. TEDUGLUTIDE [Suspect]
     Active Substance: TEDUGLUTIDE
     Dosage: 1.33 MILLIGRAM, QD
     Route: 058
     Dates: start: 20171018
  13. TEDUGLUTIDE [Suspect]
     Active Substance: TEDUGLUTIDE
     Dosage: 1.33 MILLIGRAM, QD
     Route: 058
     Dates: start: 20201001
  14. TEDUGLUTIDE [Suspect]
     Active Substance: TEDUGLUTIDE
     Dosage: 1.33 MILLIGRAM, QD
     Route: 058
     Dates: start: 20201001
  15. TEDUGLUTIDE [Suspect]
     Active Substance: TEDUGLUTIDE
     Dosage: 1.33 MILLIGRAM, QD
     Route: 058
     Dates: start: 20201001
  16. TEDUGLUTIDE [Suspect]
     Active Substance: TEDUGLUTIDE
     Dosage: 1.33 MILLIGRAM, QD
     Route: 058
     Dates: start: 20201001
  17. CODEINE [Concomitant]
     Active Substance: CODEINE
     Indication: Gastrointestinal stoma complication
     Dosage: 7.50 MILLIGRAM, BID
     Route: 048
     Dates: start: 20201104, end: 20210106
  18. CODEINE [Concomitant]
     Active Substance: CODEINE
     Dosage: 15 MILLIGRAM, BID
     Route: 048
     Dates: start: 20210106
  19. VITAMIN A [Concomitant]
     Active Substance: VITAMIN A
     Indication: Vitamin A deficiency
     Dosage: 10000 INTERNATIONAL UNIT, QD
     Route: 048
     Dates: start: 20201104, end: 20210120
  20. SODIUM CHLORIDE [Concomitant]
     Active Substance: SODIUM CHLORIDE
     Indication: Dehydration
     Dosage: 1000 MILLIGRAM
     Route: 048
     Dates: start: 20201001, end: 20201104

REACTIONS (2)
  - Colorectal cancer [Recovered/Resolved]
  - Colorectal adenocarcinoma [Recovered/Resolved]
